FAERS Safety Report 5528040-X (Version None)
Quarter: 2007Q4

REPORT INFORMATION
  Report Type: 
  Country: None (occurrence: None)
  Receive Date: 20071128
  Receipt Date: 20071119
  Transmission Date: 20080405
  Serious: Yes (Other)
  Sender: FDA-Public Use
  Company Number: GY-JNJFOC-20071108963

PATIENT
  Age: 65 Year
  Sex: Female

DRUGS (2)
  1. TYLENOL COLD MULTI-SYMPTOM DAYTIME RAPID RELEASE [Suspect]
     Indication: RHINORRHOEA
  2. TYLENOL COLD MULTI-SYMPTOM DAYTIME RAPID RELEASE [Suspect]
     Indication: SNEEZING

REACTIONS (1)
  - HYPERSENSITIVITY [None]
